FAERS Safety Report 23507136 (Version 1)
Quarter: 2024Q1

REPORT INFORMATION
  Report Type: Spontaneous
  Country: FR (occurrence: FR)
  Receive Date: 20240209
  Receipt Date: 20240209
  Transmission Date: 20240410
  Serious: Yes (Hospitalization)
  Sender: FDA-Public Use
  Company Number: None

PATIENT
  Age: 58 Year
  Sex: Male
  Weight: 92 kg

DRUGS (10)
  1. INLYTA [Suspect]
     Active Substance: AXITINIB
     Indication: Renal cancer
     Dosage: 10 MG, 1X/DAY
     Route: 048
     Dates: start: 20230703, end: 20230718
  2. INLYTA [Suspect]
     Active Substance: AXITINIB
     Dosage: 14 MG, 1X/DAY
     Route: 048
     Dates: start: 20230719, end: 20230907
  3. INLYTA [Suspect]
     Active Substance: AXITINIB
     Dosage: 20 MG, 1X/DAY
     Route: 048
     Dates: start: 20230908, end: 20231016
  4. PREDNISOLONE [Suspect]
     Active Substance: PREDNISOLONE
     Indication: Adrenocortical steroid therapy
     Dosage: 20 MG, 1X/DAY
     Route: 048
  5. KARDEGIC [Concomitant]
     Active Substance: ASPIRIN DL-LYSINE
  6. AMLODIPINE BESYLATE [Concomitant]
     Active Substance: AMLODIPINE BESYLATE
  7. TOUJEO [Concomitant]
     Active Substance: INSULIN GLARGINE
  8. NEBIVOLOL HYDROCHLORIDE [Concomitant]
     Active Substance: NEBIVOLOL HYDROCHLORIDE
  9. INSULIN GLARGINE [Concomitant]
     Active Substance: INSULIN GLARGINE
  10. CRESTOR [Concomitant]
     Active Substance: ROSUVASTATIN CALCIUM

REACTIONS (3)
  - Posterior reversible encephalopathy syndrome [Recovered/Resolved with Sequelae]
  - Hepatic cytolysis [Recovering/Resolving]
  - Cholestasis [Recovering/Resolving]

NARRATIVE: CASE EVENT DATE: 20231005
